FAERS Safety Report 8156522-3 (Version None)
Quarter: 2012Q1

REPORT INFORMATION
  Report Type: 
  Country: None (occurrence: None)
  Receive Date: 20120222
  Receipt Date: 20120215
  Transmission Date: 20120608
  Serious: Yes (Other)
  Sender: FDA-Public Use
  Company Number: US-AMGEN-USASP2012010563

PATIENT
  Age: 57 Year
  Sex: Female
  Weight: 62.132 kg

DRUGS (4)
  1. PROCRIT [Suspect]
     Indication: ANAEMIA
     Dosage: 40000 IU, 2 TIMES/WK
     Route: 058
     Dates: start: 20120125
  2. RIBAVIRIN FPO [Concomitant]
     Indication: HEPATITIS C
     Dosage: UNK
     Route: 048
     Dates: start: 20111228
  3. INCIVEK [Concomitant]
     Indication: HEPATITIS C
     Dosage: UNK
     Route: 048
     Dates: start: 20111228
  4. INFEREON [Concomitant]
     Indication: HEPATITIS C
     Dosage: UNK
     Route: 042
     Dates: start: 20111228

REACTIONS (10)
  - DYSPNOEA [None]
  - ACCIDENTAL EXPOSURE [None]
  - MALAISE [None]
  - INCORRECT DOSE ADMINISTERED [None]
  - INAPPROPRIATE SCHEDULE OF DRUG ADMINISTRATION [None]
  - RED BLOOD CELL COUNT DECREASED [None]
  - ACTIVITIES OF DAILY LIVING IMPAIRED [None]
  - WRONG TECHNIQUE IN DRUG USAGE PROCESS [None]
  - FATIGUE [None]
  - FEELING ABNORMAL [None]
